FAERS Safety Report 22215318 (Version 1)
Quarter: 2023Q2

REPORT INFORMATION
  Report Type: Spontaneous
  Country: US (occurrence: US)
  Receive Date: 20230415
  Receipt Date: 20230415
  Transmission Date: 20230721
  Serious: No
  Sender: FDA-Public Use
  Company Number: US-JNJFOC-20190628079

PATIENT
  Sex: Male

DRUGS (1)
  1. DIMETHICONE\LOPERAMIDE [Suspect]
     Active Substance: DIMETHICONE\LOPERAMIDE
     Indication: Diarrhoea
     Route: 048

REACTIONS (1)
  - Constipation [Unknown]
